FAERS Safety Report 6548725-6 (Version None)
Quarter: 2010Q1

REPORT INFORMATION
  Report Type: 
  Country: None (occurrence: None)
  Receive Date: 20100124
  Receipt Date: 20091029
  Transmission Date: 20100710
  Serious: No
  Sender: FDA-Public Use
  Company Number: US-ALLERGAN-0915077US

PATIENT
  Age: 82 Year
  Sex: Male

DRUGS (6)
  1. RESTASIS [Suspect]
     Indication: DRY EYE
     Route: 047
  2. REFRESH TEARS [Concomitant]
  3. LUMIGAN [Concomitant]
  4. ALPHAGAN [Concomitant]
  5. REFRESH P.M. [Concomitant]
     Dosage: UNK
  6. LOTEMAX [Concomitant]

REACTIONS (3)
  - EYE IRRITATION [None]
  - EYE PAIN [None]
  - VISION BLURRED [None]
